FAERS Safety Report 20567523 (Version 1)
Quarter: 2022Q1

REPORT INFORMATION
  Report Type: Report from Study
  Country: JP (occurrence: JP)
  Receive Date: 20220308
  Receipt Date: 20220308
  Transmission Date: 20220423
  Serious: Yes (Death)
  Sender: FDA-Public Use
  Company Number: JP-CHUGAI-2022007658

PATIENT
  Age: 49 Year
  Sex: Female

DRUGS (2)
  1. BEVACIZUMAB [Suspect]
     Active Substance: BEVACIZUMAB
     Indication: Breast cancer
     Dosage: ON 21/OCT/2020, SHE RECEIVED MOST RECENT DOSE OF BEVACIZUMAB.
     Route: 041
     Dates: start: 20200925
  2. PACLITAXEL [Concomitant]
     Active Substance: PACLITAXEL
     Indication: Breast cancer
     Dosage: UNK
     Route: 041
     Dates: start: 20200925, end: 20201021

REACTIONS (1)
  - Death [Fatal]

NARRATIVE: CASE EVENT DATE: 20201026
